FAERS Safety Report 6311839-X (Version None)
Quarter: 2009Q3

REPORT INFORMATION
  Report Type: 
  Country: None (occurrence: None)
  Receive Date: 20090817
  Receipt Date: 20090812
  Transmission Date: 20100115
  Serious: Yes (Life-Threatening, Hospitalization, Other)
  Sender: FDA-Public Use
  Company Number: PHEH2009US08918

PATIENT
  Sex: Female
  Weight: 90.703 kg

DRUGS (5)
  1. RECLAST [Suspect]
     Indication: OSTEOPENIA
     Dosage: UNK
     Dates: start: 20090626, end: 20090626
  2. DIOVAN [Concomitant]
     Indication: HYPERTENSION
     Dosage: 320/25 MG, DAILY
     Route: 048
     Dates: start: 20000101
  3. METFORMIN HCL [Concomitant]
     Indication: DIABETES MELLITUS
     Dosage: UNK, DAILY
     Route: 048
     Dates: start: 20000101
  4. ZANTAC [Concomitant]
     Indication: GASTROOESOPHAGEAL REFLUX DISEASE
     Dosage: UNK, DAILY
     Route: 048
     Dates: start: 20000101
  5. MOTRIN [Concomitant]
     Indication: PAIN
     Dosage: UNK, DAILY
     Route: 048
     Dates: start: 20000101

REACTIONS (6)
  - BACK PAIN [None]
  - CHEST PAIN [None]
  - DYSPNOEA [None]
  - FIBRIN D DIMER INCREASED [None]
  - HYPERTENSION [None]
  - PULMONARY EMBOLISM [None]
